FAERS Safety Report 19355119 (Version 5)
Quarter: 2022Q4

REPORT INFORMATION
  Report Type: Report from Study
  Country: MX (occurrence: MX)
  Receive Date: 20210531
  Receipt Date: 20221216
  Transmission Date: 20230113
  Serious: Yes (Other)
  Sender: FDA-Public Use
  Company Number: NVSC2021MX119381

PATIENT
  Sex: Female
  Weight: 73 kg

DRUGS (11)
  1. EXFORGE HCT [Suspect]
     Active Substance: AMLODIPINE BESYLATE\HYDROCHLOROTHIAZIDE\VALSARTAN
     Indication: Cardiac disorder
     Dosage: 1 DOSAGE FORM, QD
     Route: 048
     Dates: start: 201304, end: 201512
  2. EXFORGE HCT [Suspect]
     Active Substance: AMLODIPINE BESYLATE\HYDROCHLOROTHIAZIDE\VALSARTAN
     Indication: Arrhythmia
     Dosage: UNK (10/320/12.5 MG)
     Route: 065
     Dates: start: 20130809
  3. EXFORGE HCT [Suspect]
     Active Substance: AMLODIPINE BESYLATE\HYDROCHLOROTHIAZIDE\VALSARTAN
     Indication: Hypertension
  4. EXFORGE [Suspect]
     Active Substance: AMLODIPINE BESYLATE\VALSARTAN
     Indication: Cardiac disorder
     Dosage: 1 DOSAGE FORM, QD
     Route: 048
     Dates: start: 201512, end: 20210521
  5. EXFORGE [Suspect]
     Active Substance: AMLODIPINE BESYLATE\VALSARTAN
     Indication: Arrhythmia
     Dosage: UNK (10/320/25 MG) (START DATE WAS NOV 2013 OR 2014 AND FEB 2018 OR 2019))
     Route: 065
  6. EXFORGE [Suspect]
     Active Substance: AMLODIPINE BESYLATE\VALSARTAN
     Indication: Hypertension
     Dosage: UNK (160/10/25 MG)
     Route: 065
     Dates: start: 20151109, end: 202105
  7. EXFORGE [Suspect]
     Active Substance: AMLODIPINE BESYLATE\VALSARTAN
     Dosage: UNK (5/160 MG)
     Route: 065
     Dates: start: 20200624
  8. EXFORGE [Suspect]
     Active Substance: AMLODIPINE BESYLATE\VALSARTAN
     Dosage: 1 DOSAGE FORM, QD (10/320 MG)
     Route: 048
     Dates: start: 20210413
  9. METOPROLOL [Suspect]
     Active Substance: METOPROLOL
     Indication: Hypertension
     Dosage: 0.5 DOSAGE FORM, Q12H
     Route: 048
     Dates: start: 2015
  10. DIOVAN [Suspect]
     Active Substance: VALSARTAN
     Indication: Hypertension
     Dosage: 160 MG
     Route: 065
     Dates: start: 20130506
  11. DIOVAN [Suspect]
     Active Substance: VALSARTAN
     Dosage: 1 DOSAGE FORM (320 MG)
     Route: 048
     Dates: start: 20210521

REACTIONS (16)
  - Blindness [Unknown]
  - Pollakiuria [Unknown]
  - Bradycardia [Unknown]
  - Swelling [Unknown]
  - Cardiovascular disorder [Recovered/Resolved]
  - Peripheral swelling [Recovered/Resolved]
  - Poor peripheral circulation [Unknown]
  - Movement disorder [Unknown]
  - Blood glucose increased [Unknown]
  - Erythema [Unknown]
  - Muscle spasms [Recovered/Resolved]
  - Muscle spasms [Recovered/Resolved]
  - Pain [Unknown]
  - Drug intolerance [Unknown]
  - Blood pressure increased [Unknown]
  - Off label use [Unknown]

NARRATIVE: CASE EVENT DATE: 20170101
